FAERS Safety Report 23312337 (Version 1)
Quarter: 2023Q4

REPORT INFORMATION
  Report Type: Spontaneous
  Country: US (occurrence: US)
  Receive Date: 20231219
  Receipt Date: 20231219
  Transmission Date: 20240110
  Serious: Yes (Death, Other)
  Sender: FDA-Public Use
  Company Number: US-BRISTOL-MYERS SQUIBB COMPANY-2023-182737

PATIENT
  Age: 85 Year
  Sex: Male

DRUGS (2)
  1. ELIQUIS [Suspect]
     Active Substance: APIXABAN
     Indication: Product used for unknown indication
     Dates: start: 20210414, end: 20220101
  2. ELIQUIS [Suspect]
     Active Substance: APIXABAN

REACTIONS (2)
  - Death [Fatal]
  - Treatment noncompliance [Unknown]

NARRATIVE: CASE EVENT DATE: 20220101
